FAERS Safety Report 5123209-0 (Version None)
Quarter: 2006Q4

REPORT INFORMATION
  Report Type: 
  Country: None (occurrence: None)
  Receive Date: 20061005
  Receipt Date: 20060929
  Transmission Date: 20070319
  Serious: Yes (Hospitalization)
  Sender: FDA-Public Use
  Company Number: SPV1-2006-00931

PATIENT
  Sex: Female

DRUGS (4)
  1. MIDODRINE [Suspect]
     Indication: HYPOTENSION
     Dosage: 2.5
     Dates: end: 20060623
  2. STALEVO 100 [Suspect]
     Indication: PARKINSON'S DISEASE
     Dates: end: 20060623
  3. ASPIRIN [Suspect]
  4. CALCITE + D (ERGOCALCIFEROL) [Concomitant]

REACTIONS (3)
  - DEPRESSED LEVEL OF CONSCIOUSNESS [None]
  - PNEUMONIA ASPIRATION [None]
  - SOMNOLENCE [None]
